FAERS Safety Report 23234822 (Version 1)
Quarter: 2023Q4

REPORT INFORMATION
  Report Type: Spontaneous
  Country: US (occurrence: US)
  Receive Date: 20231128
  Receipt Date: 20231128
  Transmission Date: 20240110
  Serious: Yes (Other)
  Sender: FDA-Public Use
  Company Number: US-AMGEN-USASP2023210647

PATIENT
  Age: 74 Year
  Sex: Male

DRUGS (1)
  1. EVOLOCUMAB [Suspect]
     Active Substance: EVOLOCUMAB
     Indication: Dyslipidaemia
     Dosage: UNK
     Route: 065

REACTIONS (4)
  - Metastatic malignant melanoma [Unknown]
  - Hypertransaminasaemia [Recovered/Resolved]
  - Gallbladder polyp [Unknown]
  - Hepatic steatosis [Unknown]
